FAERS Safety Report 17909755 (Version 1)
Quarter: 2020Q2

REPORT INFORMATION
  Report Type: Other
  Country: CA (occurrence: CA)
  Receive Date: 20200617
  Receipt Date: 20200617
  Transmission Date: 20200714
  Serious: Yes (Death, Other)
  Sender: FDA-Public Use
  Company Number: CA-APOTEX-2020AP012082

PATIENT
  Age: 66 Year
  Sex: Male

DRUGS (2)
  1. FENTANYL. [Suspect]
     Active Substance: FENTANYL
     Indication: PRODUCT USED FOR UNKNOWN INDICATION
     Dosage: UNK
     Route: 065
  2. EPCLUSA [Suspect]
     Active Substance: SOFOSBUVIR\VELPATASVIR
     Indication: ANTIVIRAL TREATMENT
     Dosage: 1 DF, UNK, THERAPY DURATION: 254 UNIT UNKNOWN
     Route: 048

REACTIONS (2)
  - Accidental overdose [Fatal]
  - Pulseless electrical activity [Fatal]
